FAERS Safety Report 8650185 (Version 3)
Quarter: 2013Q4

REPORT INFORMATION
  Report Type: Report from Study
  Country: JP (occurrence: JP)
  Receive Date: 20120705
  Receipt Date: 20131209
  Transmission Date: 20140711
  Serious: Yes (Other)
  Sender: FDA-Public Use
  Company Number: JP-ROCHE-1082029

PATIENT
  Age: 55 Year
  Sex: Female
  Weight: 61.2 kg

DRUGS (3)
  1. TRASTUZUMAB [Suspect]
     Indication: BREAST CANCER
     Dosage: LAST DOSE PRIOR TO SAE: 04/JUL/2005
     Route: 042
     Dates: start: 20030718
  2. TRASTUZUMAB [Suspect]
     Dosage: DATE OF LAST DOSE PRIOR TO SAE:04/JUL/2005
     Route: 042
  3. TRIAZOLAM [Suspect]
     Indication: PRODUCT USED FOR UNKNOWN INDICATION
     Route: 065
     Dates: end: 20050821

REACTIONS (1)
  - Carcinoid tumour of the gastrointestinal tract [Recovered/Resolved]
